FAERS Safety Report 9931300 (Version 2)
Quarter: 2014Q1

REPORT INFORMATION
  Report Type: Spontaneous
  Country: JP (occurrence: JP)
  Receive Date: 20140228
  Receipt Date: 20140306
  Transmission Date: 20141002
  Serious: Yes (Other)
  Sender: FDA-Public Use
  Company Number: JP-AMGEN-JPNSP2014014169

PATIENT
  Sex: Male

DRUGS (4)
  1. VECTIBIX [Suspect]
     Indication: COLON CANCER
     Dosage: UNK
     Route: 041
  2. ELPLAT [Suspect]
     Indication: COLON CANCER
     Dosage: UNK
     Route: 041
  3. FLUOROURACIL [Concomitant]
     Indication: COLON CANCER
     Dosage: UNK
     Route: 042
  4. CALCIUM LEVOFOLINATE [Concomitant]
     Indication: COLON CANCER
     Dosage: UNK
     Route: 041

REACTIONS (1)
  - Interstitial lung disease [Not Recovered/Not Resolved]
